FAERS Safety Report 10384435 (Version 3)
Quarter: 2015Q2

REPORT INFORMATION
  Report Type: Spontaneous
  Country: JP (occurrence: None)
  Receive Date: 20140812
  Receipt Date: 20150410
  Transmission Date: 20150821
  Serious: Yes (Hospitalization)
  Sender: FDA-Public Use
  Company Number: ABR_01760_2014

PATIENT
  Age: 40 Year
  Sex: Male

DRUGS (7)
  1. MOHRUS [Concomitant]
     Active Substance: KETOPROFEN
  2. LOXOPROFEN SODIUM [Concomitant]
     Active Substance: LOXOPROFEN SODIUM
  3. MUCOSTA [Concomitant]
     Active Substance: REBAMIPIDE
  4. GLIADEL [Suspect]
     Active Substance: CARMUSTINE
     Indication: MALIGNANT GLIOMA
     Dosage: INTRACEREBRAL
     Dates: start: 20140520
  5. LYRICA [Concomitant]
     Active Substance: PREGABALIN
  6. SENNA [Concomitant]
     Active Substance: SENNA LEAF\SENNOSIDES\SENNOSIDES A AND B
  7. BETAMETHASONE [Concomitant]
     Active Substance: BETAMETHASONE

REACTIONS (5)
  - Malignant neoplasm progression [None]
  - Disease progression [None]
  - Cerebrospinal fluid leakage [None]
  - Impaired healing [None]
  - Malignant glioma [None]

NARRATIVE: CASE EVENT DATE: 20140526
